FAERS Safety Report 9819982 (Version 1)
Quarter: 2013Q4

REPORT INFORMATION
  Report Type: Spontaneous
  Country: US (occurrence: None)
  Receive Date: 20131223
  Receipt Date: 20131223
  Transmission Date: 20140711
  Serious: No
  Sender: FDA-Public Use
  Company Number: 222785

PATIENT
  Sex: Female

DRUGS (1)
  1. PICATO [Suspect]
     Indication: ACTINIC KERATOSIS
     Dosage: ONCE DAILY FOR 3 DAYS
     Route: 061
     Dates: start: 20130723, end: 20130725

REACTIONS (2)
  - Skin tightness [None]
  - Application site reaction [None]
